FAERS Safety Report 18273328 (Version 1)
Quarter: 2020Q3

REPORT INFORMATION
  Report Type: Spontaneous
  Country: US (occurrence: US)
  Receive Date: 20200916
  Receipt Date: 20200916
  Transmission Date: 20201103
  Serious: No
  Sender: FDA-Public Use
  Company Number: US-THERAPEUTICSMD-2020TMD02912

PATIENT
  Age: 61 Year
  Sex: Female
  Weight: 58.05 kg

DRUGS (3)
  1. UNSPECIFIED VITAMIN [Concomitant]
     Active Substance: VITAMINS
  2. PRAVASTATIN. [Concomitant]
     Active Substance: PRAVASTATIN
  3. IMVEXXY [Suspect]
     Active Substance: ESTRADIOL
     Indication: VULVOVAGINAL DRYNESS
     Dosage: 4 ?G, 2X/WEEK IN THE MORNING, AFTER SHOWERING
     Route: 067
     Dates: start: 202006

REACTIONS (3)
  - Flatulence [Not Recovered/Not Resolved]
  - Abdominal distension [Not Recovered/Not Resolved]
  - Off label use [Not Recovered/Not Resolved]

NARRATIVE: CASE EVENT DATE: 202006
